FAERS Safety Report 7631647-7 (Version None)
Quarter: 2011Q3

REPORT INFORMATION
  Report Type: 
  Country: None (occurrence: None)
  Receive Date: 20110725
  Receipt Date: 20110204
  Transmission Date: 20111222
  Serious: No
  Sender: FDA-Public Use
  Company Number: US-BRISTOL-MYERS SQUIBB COMPANY-15531668

PATIENT
  Age: 82 Year
  Sex: Female
  Weight: 43 kg

DRUGS (7)
  1. DILTIAZEM HCL [Concomitant]
  2. MAGNESIUM [Concomitant]
  3. LOPRESSOR [Concomitant]
  4. ZOCOR [Concomitant]
     Indication: BLOOD CHOLESTEROL ABNORMAL
  5. MULTAQ [Concomitant]
  6. POTASSIUM [Concomitant]
  7. COUMADIN [Suspect]
     Dosage: TITRATING UP COUMADIN FROM 1 MG TO 2 MG TO 4 MG
     Dates: start: 20110201

REACTIONS (3)
  - TREMOR [None]
  - CHILLS [None]
  - HYPOTENSION [None]
